FAERS Safety Report 9255013 (Version 3)
Quarter: 2013Q2

REPORT INFORMATION
  Report Type: Spontaneous
  Country: GB (occurrence: None)
  Receive Date: 20130422
  Receipt Date: 20130429
  Transmission Date: 20140414
  Serious: Yes (Hospitalization, Other)
  Sender: FDA-Public Use
  Company Number: AUR-APL-2013-03153

PATIENT
  Age: 68 Year
  Sex: Male
  Weight: 63.5 kg

DRUGS (3)
  1. RAMIPRIL [Suspect]
     Indication: HYPERTENSION
     Route: 048
     Dates: start: 20130116, end: 20130117
  2. FINASTERIDE [Concomitant]
  3. TERAZOSIN (TERAZOSIN) [Concomitant]

REACTIONS (4)
  - Balance disorder [None]
  - Urinary retention [None]
  - Prostatomegaly [None]
  - Fall [None]
